FAERS Safety Report 17833414 (Version 1)
Quarter: 2020Q2

REPORT INFORMATION
  Report Type: Spontaneous
  Country: US (occurrence: US)
  Receive Date: 20200527
  Receipt Date: 20200527
  Transmission Date: 20200714
  Serious: Yes (Other)
  Sender: FDA-Public Use
  Company Number: None

PATIENT
  Age: 53 Year
  Sex: Male
  Weight: 98.9 kg

DRUGS (16)
  1. CEFTRIAXONE. [Concomitant]
     Active Substance: CEFTRIAXONE
     Dates: start: 20200525
  2. MIDAZOLAM INFUSION [Concomitant]
     Active Substance: MIDAZOLAM HYDROCHLORIDE
     Dates: start: 20200526
  3. AMIODARONE INFUSION [Concomitant]
     Dates: start: 20200526
  4. NOREPINEPHRINE INFUSION [Concomitant]
     Dates: start: 20200526
  5. VASOPRESSIN INFUSION [Concomitant]
     Dates: start: 20200526, end: 20200526
  6. DIGOXIN BOLUS IV [Concomitant]
     Dates: start: 20200526, end: 20200526
  7. PHENYLEPHRINE INFUSION [Concomitant]
     Dates: start: 20200526
  8. DOXYCYCLINE IV [Concomitant]
     Dates: start: 20200525
  9. REMDESIVIR. [Suspect]
     Active Substance: REMDESIVIR
     Indication: COVID-19 PNEUMONIA
     Dosage: ?          OTHER FREQUENCY:ONCE;?
     Route: 042
     Dates: start: 20200526, end: 20200527
  10. FENTANYL INFUSION [Concomitant]
     Active Substance: FENTANYL
     Dates: start: 20200526
  11. PROPOFOL INFUSION [Concomitant]
     Active Substance: PROPOFOL
     Dates: start: 20200526
  12. SODIUM BICARBONATE INUSION [Concomitant]
     Dates: start: 20200526
  13. DOBUTAMINE INFUSION [Concomitant]
     Dates: start: 20200526
  14. ENOXAPARIN 40MG Q12 [Concomitant]
     Dates: start: 20200526
  15. FAMOTIDINE 20MG IV Q12 [Concomitant]
     Dates: start: 20200526
  16. HYDROCORTISONE 50MG IV Q6HR [Concomitant]
     Dates: start: 20200527

REACTIONS (10)
  - Hypoxia [None]
  - Blood bilirubin increased [None]
  - Acute respiratory failure [None]
  - Viral cardiomyopathy [None]
  - Aspartate aminotransferase increased [None]
  - Acute respiratory distress syndrome [None]
  - Shock [None]
  - Blood creatinine increased [None]
  - Alanine aminotransferase increased [None]
  - Blood alkaline phosphatase increased [None]

NARRATIVE: CASE EVENT DATE: 20200527
